FAERS Safety Report 18106863 (Version 3)
Quarter: 2020Q3

REPORT INFORMATION
  Report Type: Spontaneous
  Country: US (occurrence: US)
  Receive Date: 20200803
  Receipt Date: 20200821
  Transmission Date: 20201103
  Serious: No
  Sender: FDA-Public Use
  Company Number: US-PFIZER INC-2020287482

PATIENT
  Age: 73 Year
  Sex: Female

DRUGS (5)
  1. TOPRICIN PAIN RELIEF [Concomitant]
     Indication: FIBROMYALGIA
  2. FLECTOR [Suspect]
     Active Substance: DICLOFENAC EPOLAMINE
     Indication: NEURALGIA
     Dosage: UNK UNK, 2X/DAY (CHANGE 1 PATCH ONCE EVERY 12 HOURS)
  3. FLECTOR [Suspect]
     Active Substance: DICLOFENAC EPOLAMINE
     Dosage: UNK, AS NEEDED (SHE USES THE PATCHES MORE LIKE AS NEEDED)
  4. FLECTOR [Suspect]
     Active Substance: DICLOFENAC EPOLAMINE
     Dosage: 1 DF, 2X/DAY
  5. TOPRICIN PAIN RELIEF [Concomitant]
     Indication: NEURALGIA
     Dosage: UNK

REACTIONS (6)
  - Intentional product misuse [Unknown]
  - Off label use [Unknown]
  - Hypoacusis [Unknown]
  - Product use in unapproved indication [Unknown]
  - Reading disorder [Unknown]
  - Visual impairment [Unknown]
